FAERS Safety Report 9681266 (Version 2)
Quarter: 2013Q4

REPORT INFORMATION
  Report Type: Spontaneous
  Country: US (occurrence: US)
  Receive Date: 20131111
  Receipt Date: 20131111
  Transmission Date: 20140711
  Serious: Yes (Other)
  Sender: FDA-Public Use
  Company Number: US-ABBVIE-09P-163-0568762-00

PATIENT
  Age: 61 Year
  Sex: Male
  Weight: 120.31 kg

DRUGS (22)
  1. HUMIRA 40 MG/0.8 ML PEN [Suspect]
     Indication: PSORIASIS
     Route: 058
     Dates: start: 2007, end: 200902
  2. HUMIRA 40 MG/0.8 ML PEN [Suspect]
  3. HUMIRA 40 MG/ 0.8 ML PRE-FILLED SYRINGE [Suspect]
     Indication: PSORIASIS
     Dates: start: 2004, end: 200908
  4. METHOTREXATE [Concomitant]
     Indication: PSORIASIS
     Route: 048
  5. LYSINE [Concomitant]
     Indication: ROUTINE HEALTH MAINTENANCE
     Route: 048
  6. TRICOR [Concomitant]
     Indication: BLOOD CHOLESTEROL INCREASED
     Route: 048
  7. NASONEX [Concomitant]
     Indication: HYPERSENSITIVITY
  8. HUMALOG [Concomitant]
     Indication: DIABETES MELLITUS
  9. ASPIRIN [Concomitant]
     Indication: ROUTINE HEALTH MAINTENANCE
     Route: 048
  10. AVANDIA [Concomitant]
     Indication: DIABETES MELLITUS
     Route: 048
  11. BYETTA [Concomitant]
     Indication: DIABETES MELLITUS
  12. HYTRIN [Concomitant]
     Indication: HYPERTENSION
     Route: 048
  13. FOLIC ACID [Concomitant]
     Indication: PSORIASIS
     Route: 048
  14. LANTUS [Concomitant]
     Indication: DIABETES MELLITUS
  15. METOPROLOL [Concomitant]
     Indication: HYPERTENSION
     Route: 048
  16. NEXIUM [Concomitant]
     Indication: GASTROOESOPHAGEAL REFLUX DISEASE
     Route: 048
  17. ALLOPURINOL [Concomitant]
     Indication: GOUT
     Route: 048
  18. NAPROXYN [Concomitant]
     Indication: PRODUCT USED FOR UNKNOWN INDICATION
  19. ALLOPURINOL [Concomitant]
     Indication: PRODUCT USED FOR UNKNOWN INDICATION
  20. VITAMIN D3 [Concomitant]
     Indication: PRODUCT USED FOR UNKNOWN INDICATION
  21. MAGNESIUM [Concomitant]
     Indication: PRODUCT USED FOR UNKNOWN INDICATION
  22. MULTIVITAMIN [Concomitant]
     Indication: PRODUCT USED FOR UNKNOWN INDICATION

REACTIONS (4)
  - Chronic myeloid leukaemia [Not Recovered/Not Resolved]
  - Psoriasis [Not Recovered/Not Resolved]
  - Skin ulcer [Recovered/Resolved]
  - Blood test abnormal [Unknown]
